FAERS Safety Report 7120510-6 (Version None)
Quarter: 2010Q4

REPORT INFORMATION
  Report Type: 
  Country: None (occurrence: None)
  Receive Date: 20101122
  Receipt Date: 20101122
  Transmission Date: 20110411
  Serious: No
  Sender: FDA-Public Use
  Company Number: None

PATIENT
  Age: 82 Year
  Sex: Female
  Weight: 54.4316 kg

DRUGS (1)
  1. AMIODARONE HCL [Suspect]
     Indication: ATRIAL FIBRILLATION
     Dosage: 400MG THEN 2 X DAILY MOUTH ; 200MG ONCE DAILY
     Route: 048
     Dates: start: 20101026

REACTIONS (13)
  - ABDOMINAL DISTENSION [None]
  - ABNORMAL DREAMS [None]
  - APATHY [None]
  - DECREASED INTEREST [None]
  - ERUCTATION [None]
  - FLATULENCE [None]
  - HEART RATE DECREASED [None]
  - LISTLESS [None]
  - MALAISE [None]
  - NAUSEA [None]
  - NIGHTMARE [None]
  - POOR QUALITY SLEEP [None]
  - RESTLESSNESS [None]
